FAERS Safety Report 10732915 (Version 2)
Quarter: 2015Q1

REPORT INFORMATION
  Report Type: Spontaneous
  Country: US (occurrence: None)
  Receive Date: 20150120
  Receipt Date: 20150126
  Transmission Date: 20150721
  Serious: Yes (Other)
  Sender: FDA-Public Use
  Company Number: 2014-US-016437

PATIENT
  Age: 65 Year
  Sex: Female
  Weight: 88.9 kg

DRUGS (3)
  1. BACITRACIN (BACITRACIN) [Suspect]
     Active Substance: BACITRACIN
     Indication: PRODUCT USED FOR UNKNOWN INDICATION
  2. XYREM [Suspect]
     Active Substance: SODIUM OXYBATE
     Indication: NARCOLEPSY
     Route: 048
     Dates: start: 200409, end: 2004
  3. LASIX [Suspect]
     Active Substance: FUROSEMIDE
     Indication: PERIPHERAL SWELLING
     Route: 048
     Dates: start: 2012

REACTIONS (8)
  - Dizziness [None]
  - Contusion [None]
  - Fall [None]
  - Back injury [None]
  - Blood potassium decreased [None]
  - Peripheral swelling [None]
  - Drug dose omission [None]
  - Laceration [None]

NARRATIVE: CASE EVENT DATE: 2012
